FAERS Safety Report 24650455 (Version 2)
Quarter: 2024Q4

REPORT INFORMATION
  Report Type: Spontaneous
  Country: US (occurrence: US)
  Receive Date: 20241122
  Receipt Date: 20241215
  Transmission Date: 20250114
  Serious: Yes (Other)
  Sender: LUPIN
  Company Number: US-LUPIN PHARMACEUTICALS INC.-2024-11212

PATIENT

DRUGS (4)
  1. MOXIFLOXACIN HYDROCHLORIDE [Suspect]
     Active Substance: MOXIFLOXACIN HYDROCHLORIDE
     Indication: Eye infection fungal
     Dosage: UNK (EVERY HOUR OR EVERY TWO HOUR) FIRST BOTTLE
     Route: 047
  2. MOXIFLOXACIN HYDROCHLORIDE [Suspect]
     Active Substance: MOXIFLOXACIN HYDROCHLORIDE
     Dosage: UNK (EVERY HOUR OR EVERY TWO HOUR) SECOND BOTTLE
     Route: 047
  3. MOXIFLOXACIN HYDROCHLORIDE [Suspect]
     Active Substance: MOXIFLOXACIN HYDROCHLORIDE
     Dosage: UNK THIRD BOTTLE
     Route: 047
  4. MOXIFLOXACIN HYDROCHLORIDE [Suspect]
     Active Substance: MOXIFLOXACIN HYDROCHLORIDE
     Dosage: UNK FOURTH BOTTLE
     Route: 047

REACTIONS (5)
  - Eye infection fungal [Unknown]
  - Visual impairment [Unknown]
  - Product container issue [Unknown]
  - Product dose omission issue [Unknown]
  - Off label use [Unknown]
